FAERS Safety Report 21850202 (Version 2)
Quarter: 2023Q1

REPORT INFORMATION
  Report Type: Spontaneous
  Country: US (occurrence: None)
  Receive Date: 20230111
  Receipt Date: 20230208
  Transmission Date: 20230417
  Serious: Yes (Other)
  Sender: FDA-Public Use
  Company Number: 2022A420457

PATIENT
  Age: 734 Month
  Sex: Female

DRUGS (2)
  1. SYMBICORT [Suspect]
     Active Substance: BUDESONIDE\FORMOTEROL FUMARATE DIHYDRATE
     Indication: Pneumonia
     Dosage: 160/4.5MCG AS 2 PUFFS TWICE A DAY160.0UG AS REQUIRED
     Route: 055
     Dates: start: 202212
  2. SYMBICORT [Suspect]
     Active Substance: BUDESONIDE\FORMOTEROL FUMARATE DIHYDRATE
     Indication: Pneumonia
     Dosage: 160/4.5MCG AS 2 PUFFS TWICE A DAY160.0UG AS REQUIRED
     Route: 055
     Dates: start: 202212

REACTIONS (5)
  - Dyspnoea [Unknown]
  - Off label use [Not Recovered/Not Resolved]
  - Device malfunction [Recovered/Resolved]
  - Intentional device misuse [Unknown]
  - Drug ineffective [Unknown]

NARRATIVE: CASE EVENT DATE: 20221201
